FAERS Safety Report 13824048 (Version 1)
Quarter: 2017Q3

REPORT INFORMATION
  Report Type: Spontaneous
  Country: US (occurrence: US)
  Receive Date: 20170801
  Receipt Date: 20170801
  Transmission Date: 20171127
  Serious: Yes (Hospitalization)
  Sender: FDA-Public Use
  Company Number: None

PATIENT
  Age: 76 Year
  Sex: Male

DRUGS (2)
  1. ASPIRIN. [Suspect]
     Active Substance: ASPIRIN
     Indication: HEADACHE
     Route: 048
  2. WARFARIN [Suspect]
     Active Substance: WARFARIN
     Indication: CARDIAC VALVE PROSTHESIS USER
     Dates: end: 20170704

REACTIONS (4)
  - Dizziness [None]
  - Headache [None]
  - Haemorrhagic stroke [None]
  - Blood pressure increased [None]

NARRATIVE: CASE EVENT DATE: 20170704
